FAERS Safety Report 6860576-1 (Version None)
Quarter: 2010Q3

REPORT INFORMATION
  Report Type: 
  Country: None (occurrence: None)
  Receive Date: 20100720
  Receipt Date: 20100714
  Transmission Date: 20110219
  Serious: Yes (Hospitalization)
  Sender: FDA-Public Use
  Company Number: B0666013A

PATIENT
  Sex: Female
  Weight: 86.9 kg

DRUGS (2)
  1. TOPOTECAN [Suspect]
     Dosage: 134.4MG CYCLIC
     Route: 042
     Dates: start: 20100707
  2. PACLITAXEL [Suspect]
     Dosage: 3.36MG CYCLIC
     Route: 042
     Dates: start: 20100707

REACTIONS (1)
  - PAIN [None]
